FAERS Safety Report 9459999 (Version 1)
Quarter: 2013Q3

REPORT INFORMATION
  Report Type: Spontaneous
  Country: US (occurrence: None)
  Receive Date: 20130813
  Receipt Date: 20130813
  Transmission Date: 20140515
  Serious: Yes (Other)
  Sender: FDA-Public Use
  Company Number: None

PATIENT
  Age: 58 Year
  Sex: Female
  Weight: 49.9 kg

DRUGS (5)
  1. LOTEMAX [Suspect]
     Indication: DRY EYE
     Dates: start: 20130711, end: 20130715
  2. LOTEMAX [Suspect]
     Indication: DISCOMFORT
     Dates: start: 20130711, end: 20130715
  3. OMEGA 3 [Concomitant]
  4. ZYFLAMMEND [Concomitant]
  5. GLUCOSAMINE [Concomitant]

REACTIONS (2)
  - Blindness unilateral [None]
  - Vision blurred [None]
